FAERS Safety Report 7739428-0 (Version None)
Quarter: 2011Q3

REPORT INFORMATION
  Report Type: 
  Country: None (occurrence: None)
  Receive Date: 20110909
  Receipt Date: 20110829
  Transmission Date: 20111222
  Serious: Yes (Hospitalization)
  Sender: FDA-Public Use
  Company Number: US-BAYER-2010-002751

PATIENT
  Age: 21 Year
  Sex: Female
  Weight: 72.562 kg

DRUGS (4)
  1. FLEXERIL [Concomitant]
  2. VICODIN [Concomitant]
  3. YAZ [Suspect]
     Indication: CONTRACEPTION
     Dosage: UNK
     Dates: start: 20070507, end: 20080725
  4. DARVOCET [Concomitant]

REACTIONS (3)
  - PULMONARY INFARCTION [None]
  - PAIN [None]
  - PULMONARY EMBOLISM [None]
